FAERS Safety Report 5984858-0 (Version None)
Quarter: 2008Q4

REPORT INFORMATION
  Report Type: 
  Country: None (occurrence: None)
  Receive Date: 20081202
  Receipt Date: 20081119
  Transmission Date: 20090506
  Serious: Yes (Other)
  Sender: FDA-Public Use
  Company Number: 2008AP003156

PATIENT

DRUGS (1)
  1. GEMFIBROZIL [Suspect]
     Dosage: 600 MG;BID;TAB;PO
     Route: 048

REACTIONS (2)
  - EYE PAIN [None]
  - OCULAR HYPERAEMIA [None]
